FAERS Safety Report 16608260 (Version 2)
Quarter: 2019Q3

REPORT INFORMATION
  Report Type: Spontaneous
  Country: KR (occurrence: KR)
  Receive Date: 20190722
  Receipt Date: 20190724
  Transmission Date: 20191004
  Serious: Yes (Death, Other)
  Sender: FDA-Public Use
  Company Number: KR-009507513-1905KOR011454

PATIENT
  Sex: Male

DRUGS (15)
  1. KEYTRUDA [Suspect]
     Active Substance: PEMBROLIZUMAB
     Indication: CHOLANGIOCARCINOMA
     Dosage: QUANTITY 1, DAYS 1
     Dates: start: 20190503
  2. KEYTRUDA [Suspect]
     Active Substance: PEMBROLIZUMAB
     Dosage: QUANTITY 1, DAYS 1
     Dates: start: 20190516
  3. SODIUM CHLORIDE. [Concomitant]
     Active Substance: SODIUM CHLORIDE
     Dosage: 50 ML, QUANTITY 1, DAYS 1
     Dates: start: 20190503
  4. SODIUM CHLORIDE. [Concomitant]
     Active Substance: SODIUM CHLORIDE
     Dosage: 100 ML, QUANTITY 1, DAYS 1
     Dates: start: 20190531
  5. SODIUM CHLORIDE. [Concomitant]
     Active Substance: SODIUM CHLORIDE
     Dosage: 500 ML/BAG, QUANTITY 1, DAYS 1
     Dates: start: 20190516
  6. SODIUM CHLORIDE. [Concomitant]
     Active Substance: SODIUM CHLORIDE
     Dosage: 50 ML, QUANTITY 1, DAYS 1
     Dates: start: 20190516
  7. PENIRAMIN [Concomitant]
     Dosage: QUANTITY 1, DAYS 1
     Dates: start: 20190503
  8. SODIUM CHLORIDE. [Concomitant]
     Active Substance: SODIUM CHLORIDE
     Dosage: 100 ML, QUANTITY 1, DAYS 1
     Dates: start: 20190516
  9. PENIRAMIN [Concomitant]
     Dosage: QUANTITY 1, DAYS 1
     Dates: start: 20190516
  10. SODIUM CHLORIDE. [Concomitant]
     Active Substance: SODIUM CHLORIDE
     Dosage: 100 ML, QUANTITY 1, DAYS 1
     Dates: start: 20190503
  11. SODIUM CHLORIDE. [Concomitant]
     Active Substance: SODIUM CHLORIDE
     Dosage: 50 ML, QUANTITY 1, DAYS 1
     Dates: start: 20190531
  12. KEYTRUDA [Suspect]
     Active Substance: PEMBROLIZUMAB
     Dosage: QUANTITY 1, DAYS 1
     Dates: start: 20190531
  13. SODIUM CHLORIDE. [Concomitant]
     Active Substance: SODIUM CHLORIDE
     Dosage: 500 ML, QUANTITY 1, DAYS 1
     Dates: start: 20190503
  14. SODIUM CHLORIDE. [Concomitant]
     Active Substance: SODIUM CHLORIDE
     Dosage: 500 ML/BAG, QUANTITY 1, DAYS 1
     Dates: start: 20190531
  15. PENIRAMIN [Concomitant]
     Dosage: QUANTITY 1, DAYS 1
     Dates: start: 20190531

REACTIONS (3)
  - Malignant neoplasm progression [Fatal]
  - Product use in unapproved indication [Unknown]
  - Inappropriate schedule of product administration [Unknown]

NARRATIVE: CASE EVENT DATE: 2019
